FAERS Safety Report 9695798 (Version 1)
Quarter: 2013Q4

REPORT INFORMATION
  Report Type: Report from Study
  Country: GB (occurrence: GB)
  Receive Date: 20131119
  Receipt Date: 20131119
  Transmission Date: 20140711
  Serious: Yes (Hospitalization)
  Sender: FDA-Public Use
  Company Number: GB-TEVA-444369ISR

PATIENT
  Age: 65 Year
  Sex: Female
  Weight: 101.6 kg

DRUGS (10)
  1. DOCETAXEL [Suspect]
     Indication: BREAST CANCER
     Route: 042
  2. CARBOPLATIN [Suspect]
     Indication: BREAST CANCER
     Route: 042
  3. HERCEPTIN [Suspect]
     Indication: BREAST CANCER
     Route: 042
     Dates: start: 20120601
  4. PERTUZUMAB [Suspect]
     Route: 042
  5. PERTUZUMAB [Suspect]
     Route: 042
  6. TRASTUZUMAB [Suspect]
     Dosage: 38.5714 MILLIGRAM DAILY;
     Route: 042
  7. ASPIRIN [Concomitant]
     Route: 048
     Dates: start: 2002
  8. LEVOTHYROXINE [Concomitant]
     Route: 048
     Dates: start: 2007
  9. SIMVASTATIN [Concomitant]
     Route: 048
     Dates: start: 2004
  10. LISINOPRIL [Concomitant]
     Route: 048
     Dates: start: 2002

REACTIONS (1)
  - Gastroenteritis [Recovered/Resolved]
